FAERS Safety Report 21822882 (Version 2)
Quarter: 2023Q1

REPORT INFORMATION
  Report Type: Spontaneous
  Country: DE (occurrence: DE)
  Receive Date: 20230105
  Receipt Date: 20230120
  Transmission Date: 20230418
  Serious: Yes (Other)
  Sender: FDA-Public Use
  Company Number: DE-TEVA-2022-DE-2841003

PATIENT
  Age: 66 Year
  Sex: Female

DRUGS (3)
  1. BISOPROLOL [Suspect]
     Active Substance: BISOPROLOL
     Indication: Hypertension
     Dosage: 5 MILLIGRAM DAILY;
     Route: 048
  2. BISOPROLOL [Suspect]
     Active Substance: BISOPROLOL
     Indication: Product used for unknown indication
     Dosage: 5 MILLIGRAM DAILY;
     Route: 065
  3. BISOPROLOL [Suspect]
     Active Substance: BISOPROLOL
     Route: 065

REACTIONS (14)
  - Chest pain [Unknown]
  - Chest discomfort [Unknown]
  - Dyspnoea exertional [Unknown]
  - Middle insomnia [Unknown]
  - Asthenia [Not Recovered/Not Resolved]
  - Balance disorder [Unknown]
  - Feeling abnormal [Unknown]
  - Blood pressure increased [Recovering/Resolving]
  - Heart rate irregular [Recovering/Resolving]
  - Blood pressure abnormal [Not Recovered/Not Resolved]
  - Dizziness [Not Recovered/Not Resolved]
  - Nausea [Unknown]
  - Blood pressure decreased [Unknown]
  - Malaise [Unknown]

NARRATIVE: CASE EVENT DATE: 20220901
